FAERS Safety Report 5652324-8 (Version None)
Quarter: 2008Q1

REPORT INFORMATION
  Report Type: 
  Country: None (occurrence: None)
  Receive Date: 20080131
  Receipt Date: 20071114
  Transmission Date: 20080703
  Serious: No
  Sender: FDA-Public Use
  Company Number: US200710003978

PATIENT
  Age: 58 Year
  Sex: Male
  Weight: 122.4 kg

DRUGS (7)
  1. BYETTA [Suspect]
     Indication: TYPE 1 DIABETES MELLITUS
     Dosage: 5 UG, 2/D, SUBCUTANEOUS ; 10 UG, 2/D, SUBCUTANEOUS ; OTHER, SUBCUTANEOUS
     Route: 058
     Dates: start: 20070901, end: 20071001
  2. BYETTA [Suspect]
     Indication: TYPE 1 DIABETES MELLITUS
     Dosage: 5 UG, 2/D, SUBCUTANEOUS ; 10 UG, 2/D, SUBCUTANEOUS ; OTHER, SUBCUTANEOUS
     Route: 058
     Dates: start: 20070101
  3. BYETTA [Suspect]
     Indication: TYPE 1 DIABETES MELLITUS
     Dosage: 5 UG, 2/D, SUBCUTANEOUS ; 10 UG, 2/D, SUBCUTANEOUS ; OTHER, SUBCUTANEOUS
     Route: 058
     Dates: start: 20071001
  4. ACTOS /USA/ (PIOGLITAZONE HYDROCHLORIDE) [Concomitant]
  5. LANTUS [Concomitant]
  6. ASPIRIN [Concomitant]
  7. GLUCOVANCE [Concomitant]

REACTIONS (6)
  - BLOOD GLUCOSE INCREASED [None]
  - FATIGUE [None]
  - INCORRECT DOSE ADMINISTERED [None]
  - INJECTION SITE BRUISING [None]
  - INJECTION SITE HAEMORRHAGE [None]
  - INJECTION SITE PAIN [None]
